FAERS Safety Report 23253187 (Version 2)
Quarter: 2024Q4

REPORT INFORMATION
  Report Type: Spontaneous
  Country: US (occurrence: US)
  Receive Date: 20231202
  Receipt Date: 20241015
  Transmission Date: 20250115
  Serious: Yes (Hospitalization, Other)
  Sender: GLENMARK
  Company Number: US-GLENMARK PHARMACEUTICALS-2023GMK086966

PATIENT

DRUGS (3)
  1. TACROLIMUS [Suspect]
     Active Substance: TACROLIMUS
     Indication: Immunosuppressant drug therapy
     Dosage: UNK (REDUCED DOSE)
     Route: 065
  2. PREDNISONE [Suspect]
     Active Substance: PREDNISONE
     Indication: Immunosuppressant drug therapy
     Dosage: UNK (REDUCED DOSE)
     Route: 065
  3. MYCOPHENOLIC ACID [Suspect]
     Active Substance: MYCOPHENOLIC ACID
     Indication: Immunosuppressant drug therapy
     Dosage: UNK (REDUCED DOSE)
     Route: 065

REACTIONS (8)
  - Malacoplakia [Unknown]
  - Subcapsular renal haematoma [Unknown]
  - Renal transplant failure [Unknown]
  - Hypotension [Unknown]
  - Acute kidney injury [Unknown]
  - Post transplant lymphoproliferative disorder [Unknown]
  - Bacillus infection [Unknown]
  - Abdominal pain [Unknown]
